FAERS Safety Report 5394310-1 (Version None)
Quarter: 2007Q3

REPORT INFORMATION
  Report Type: 
  Country: None (occurrence: None)
  Receive Date: 20070723
  Receipt Date: 20070523
  Transmission Date: 20080115
  Serious: No
  Sender: FDA-Public Use
  Company Number: A0652682A

PATIENT
  Age: 72 Year
  Sex: Male

DRUGS (9)
  1. AVANDIA [Suspect]
     Dosage: 4MG TWICE PER DAY
     Route: 048
     Dates: start: 20060501
  2. CELEBREX [Concomitant]
  3. LASIX [Concomitant]
  4. ZOLOFT [Concomitant]
  5. TOPROL-XL [Concomitant]
  6. PLAVIX [Concomitant]
  7. VYTORIN [Concomitant]
  8. ALLOPURINOL [Concomitant]
  9. LISINOPRIL [Concomitant]

REACTIONS (2)
  - DIZZINESS [None]
  - OEDEMA PERIPHERAL [None]
